FAERS Safety Report 25148840 (Version 3)
Quarter: 2025Q2

REPORT INFORMATION
  Report Type: Report from Study
  Country: FR (occurrence: FR)
  Receive Date: 20250402
  Receipt Date: 20250603
  Transmission Date: 20250717
  Serious: Yes (Hospitalization, Other)
  Sender: AUROBINDO
  Company Number: FR-ARISTO PHARMA-PREG202503031

PATIENT
  Age: 33 Year
  Sex: Male

DRUGS (3)
  1. PREGABALIN [Suspect]
     Active Substance: PREGABALIN
     Indication: Pain
     Route: 065
  2. GABAPENTIN [Suspect]
     Active Substance: GABAPENTIN
     Indication: Product used for unknown indication
     Dosage: 3600 MILLIGRAM, ONCE A DAY
     Route: 065
  3. GABAPENTIN [Suspect]
     Active Substance: GABAPENTIN
     Route: 065

REACTIONS (4)
  - Withdrawal syndrome [Recovered/Resolved]
  - Drug use disorder [Unknown]
  - Drug dependence [Unknown]
  - Anxiety [Unknown]
